FAERS Safety Report 17390730 (Version 7)
Quarter: 2020Q2

REPORT INFORMATION
  Report Type: Spontaneous
  Country: PL (occurrence: PL)
  Receive Date: 20200207
  Receipt Date: 20200618
  Transmission Date: 20200713
  Serious: Yes (Other)
  Sender: FDA-Public Use
  Company Number: PL-AUROBINDO-AUR-APL-2020-005559

PATIENT
  Age: 18 Year
  Sex: Male

DRUGS (11)
  1. LEVETIRACETAM. [Suspect]
     Active Substance: LEVETIRACETAM
     Indication: EPILEPSY
     Dosage: 1600 MILLIGRAM, DAILY
     Route: 065
     Dates: start: 2017, end: 201806
  2. LEVETIRACETAM. [Suspect]
     Active Substance: LEVETIRACETAM
     Indication: IDIOPATHIC GENERALISED EPILEPSY
     Dosage: 1200 MILLIGRAM, DAILY
     Route: 065
     Dates: start: 2017
  3. SODIUM VALPROATE [Suspect]
     Active Substance: VALPROATE SODIUM
     Indication: EPILEPSY
     Dosage: UNK
     Route: 065
  4. RISPERIDONE. [Suspect]
     Active Substance: RISPERIDONE
     Indication: AGGRESSION
     Dosage: 0.75 MILLIGRAM, ONCE A DAY,0.75 MG IN 2 DIVIDED DOSES
     Route: 065
     Dates: start: 2017
  5. LEVETIRACETAM. [Suspect]
     Active Substance: LEVETIRACETAM
     Dosage: 1000 MILLIGRAM, DAILY
     Route: 065
     Dates: start: 201901
  6. LEVETIRACETAM. [Suspect]
     Active Substance: LEVETIRACETAM
     Dosage: 1200 MILLIGRAM, ONCE A DAY (DOSE GRADUALLY REDUCED )
     Route: 065
     Dates: start: 2018
  7. LEVETIRACETAM. [Suspect]
     Active Substance: LEVETIRACETAM
     Dosage: 1200 MILLIGRAM, ONCE A DAY
     Route: 065
     Dates: start: 201806, end: 201901
  8. HYDROXYZINE [Suspect]
     Active Substance: HYDROXYZINE HYDROCHLORIDE
     Indication: AGGRESSION
     Dosage: 60 MILLIGRAM, ONCE A DAY,60 MILLIGRAM DAILY; 60 MG/D IN 3 DIVIDED DOSES
     Route: 065
     Dates: start: 2017
  9. LEVETIRACETAM. [Suspect]
     Active Substance: LEVETIRACETAM
     Dosage: 100 MILLIGRAM, DAILY
     Route: 065
     Dates: start: 2017
  10. LEVETIRACETAM. [Suspect]
     Active Substance: LEVETIRACETAM
     Dosage: UNK,1 DAY GRADUAL REDUCTION IN THE TOTAL DAILY DOSE FROM 1,600MG TO 1,200MG
     Route: 065
     Dates: start: 201806, end: 201807
  11. SODIUM VALPROATE [Suspect]
     Active Substance: VALPROATE SODIUM
     Indication: IDIOPATHIC GENERALISED EPILEPSY

REACTIONS (4)
  - Drug ineffective [Unknown]
  - Sexual dysfunction [Recovering/Resolving]
  - Hypersexuality [Recovering/Resolving]
  - Aggression [Recovered/Resolved]

NARRATIVE: CASE EVENT DATE: 2017
